FAERS Safety Report 13641819 (Version 2)
Quarter: 2017Q2

REPORT INFORMATION
  Report Type: Spontaneous
  Country: US (occurrence: US)
  Receive Date: 20170612
  Receipt Date: 20170627
  Transmission Date: 20170830
  Serious: No
  Sender: FDA-Public Use
  Company Number: US-PFIZER INC-2017248194

PATIENT
  Age: 68 Year
  Sex: Female
  Weight: 72.57 kg

DRUGS (7)
  1. PANTOPRAZOLE SODIUM. [Concomitant]
     Active Substance: PANTOPRAZOLE SODIUM
     Indication: GASTROOESOPHAGEAL REFLUX DISEASE
     Dosage: 40 MG, 1X/DAY
  2. VITAMIN D3 [Concomitant]
     Active Substance: CHOLECALCIFEROL
     Indication: BONE DISORDER
     Dosage: 1000 IU, DAILY
  3. XELJANZ XR [Suspect]
     Active Substance: TOFACITINIB CITRATE
     Indication: RHEUMATOID ARTHRITIS
     Dosage: 11 MG, 1X/DAY
     Dates: start: 201703
  4. LUTEIN ZEAXANTHIN [Concomitant]
     Indication: EYE DISORDER
     Dosage: UNK, 1X/DAY(140 SOFTGEL ONCE A DAY)
  5. CITRACAL PLUS D [Concomitant]
     Indication: BONE DISORDER
     Dosage: 1000 MG, DAILY
  6. ASPIRIN. [Concomitant]
     Active Substance: ASPIRIN
     Dosage: 81 MG, 1X/DAY
  7. PRAVASTATIN SODIUM. [Concomitant]
     Active Substance: PRAVASTATIN SODIUM
     Indication: BLOOD CHOLESTEROL
     Dosage: 80 MG, DAILY

REACTIONS (4)
  - Blood glucose increased [Unknown]
  - Rash [Unknown]
  - Acne [Unknown]
  - Intentional product misuse [Unknown]
